FAERS Safety Report 4736649-6 (Version None)
Quarter: 2005Q3

REPORT INFORMATION
  Report Type: 
  Country: None (occurrence: None)
  Receive Date: 20050808
  Receipt Date: 20050801
  Transmission Date: 20060218
  Serious: Yes (Other)
  Sender: FDA-Public Use
  Company Number: 2005GB01487

PATIENT
  Age: 51 Year
  Weight: 67 kg

DRUGS (1)
  1. CRESTOR [Suspect]
     Indication: MYOCARDIAL INFARCTION
     Route: 048
     Dates: start: 20040101, end: 20050608

REACTIONS (2)
  - DYSGEUSIA [None]
  - TREATMENT NONCOMPLIANCE [None]
